FAERS Safety Report 12712024 (Version 1)
Quarter: 2016Q3

REPORT INFORMATION
  Report Type: Spontaneous
  Country: US (occurrence: US)
  Receive Date: 20160902
  Receipt Date: 20160902
  Transmission Date: 20161109
  Serious: No
  Sender: FDA-Public Use
  Company Number: US-BAYER-2016-170889

PATIENT
  Age: 85 Year
  Sex: Female
  Weight: 72.56 kg

DRUGS (4)
  1. BIOTIN [Concomitant]
     Active Substance: BIOTIN
  2. ASPIRIN. [Concomitant]
     Active Substance: ASPIRIN
     Dosage: UNK, PRN
     Route: 048
  3. MIRALAX [Suspect]
     Active Substance: POLYETHYLENE GLYCOL 3350
     Indication: CONSTIPATION
     Dosage: 0.5 DF, QD
     Route: 048
     Dates: start: 201607
  4. COD LIVER OIL [Concomitant]
     Active Substance: COD LIVER OIL
     Dosage: UNK

REACTIONS (2)
  - Product use issue [Unknown]
  - Constipation [Unknown]
